FAERS Safety Report 11499053 (Version 2)
Quarter: 2015Q4

REPORT INFORMATION
  Report Type: Spontaneous
  Country: JP (occurrence: JP)
  Receive Date: 20150913
  Receipt Date: 20151029
  Transmission Date: 20160304
  Serious: Yes (Death, Other)
  Sender: FDA-Public Use
  Company Number: JP-AMGEN-JPNSP2015034108

PATIENT
  Age: 65 Year
  Sex: Male

DRUGS (10)
  1. 5-FU                               /00098801/ [Concomitant]
     Active Substance: FLUOROURACIL
     Dosage: 650 MG, Q2WEEKS
     Route: 040
     Dates: start: 20150710, end: 20150807
  2. 5-FU                               /00098801/ [Concomitant]
     Active Substance: FLUOROURACIL
     Dosage: 3840 MG, Q2WEEKS
     Route: 041
     Dates: start: 20120821, end: 20150529
  3. CAMPTO [Concomitant]
     Active Substance: IRINOTECAN
     Indication: COLON CANCER
     Dosage: 240 MG, Q2WEEKS
     Route: 041
     Dates: start: 20120821, end: 20150529
  4. VECTIBIX [Suspect]
     Active Substance: PANITUMUMAB
     Dosage: 380 MG, Q2WEEKS
     Route: 041
     Dates: start: 20150710, end: 20150807
  5. 5-FU                               /00098801/ [Concomitant]
     Active Substance: FLUOROURACIL
     Dosage: 3840 MG, Q2WEEKS
     Dates: start: 20150710, end: 20150807
  6. 5-FU                               /00098801/ [Concomitant]
     Active Substance: FLUOROURACIL
     Indication: COLON CANCER
     Dosage: 650 MG, Q2WEEKS
     Route: 040
     Dates: start: 20120821, end: 20150529
  7. CALCIUM LEVOFOLINATE [Concomitant]
     Active Substance: LEVOLEUCOVORIN CALCIUM
     Dosage: 325 MG, Q2WEEKS
     Route: 041
     Dates: start: 20150710, end: 20150807
  8. VECTIBIX [Suspect]
     Active Substance: PANITUMUMAB
     Indication: COLON CANCER
     Dosage: 380 MG, Q2WEEKS
     Route: 041
     Dates: start: 20140221, end: 20150529
  9. CALCIUM LEVOFOLINATE [Concomitant]
     Active Substance: LEVOLEUCOVORIN CALCIUM
     Indication: COLON CANCER
     Dosage: 325 MG, Q2WEEKS
     Route: 041
     Dates: start: 20120821, end: 20150529
  10. ELPLAT [Concomitant]
     Active Substance: OXALIPLATIN
     Indication: COLON CANCER
     Dosage: 140 MG, Q2WEEKS
     Route: 041
     Dates: start: 20150710, end: 20150807

REACTIONS (7)
  - Colon cancer [Fatal]
  - Pyrexia [Unknown]
  - Neutrophil count decreased [Recovered/Resolved]
  - White blood cell count increased [Unknown]
  - Ocular hyperaemia [Recovered/Resolved]
  - Skin disorder [Recovering/Resolving]
  - Eye discharge [Recovered/Resolved]

NARRATIVE: CASE EVENT DATE: 20150306
